FAERS Safety Report 5807420-9 (Version None)
Quarter: 2008Q3

REPORT INFORMATION
  Report Type: 
  Country: None (occurrence: None)
  Receive Date: 20080711
  Receipt Date: 20080703
  Transmission Date: 20090109
  Serious: Yes (Other)
  Sender: FDA-Public Use
  Company Number: ES-ABBOTT-08P-144-0460698-00

PATIENT
  Sex: Male

DRUGS (8)
  1. HUMIRA [Suspect]
     Indication: PSORIASIS
     Route: 058
     Dates: start: 20080505, end: 20080505
  2. HUMIRA [Suspect]
     Route: 058
     Dates: start: 20080512
  3. DAIVOBET (BLINDED) [Suspect]
     Indication: PSORIASIS
  4. AMILORIDE HYDROCHLORIDE [Concomitant]
     Indication: HYPERTENSION
     Dates: start: 20050101
  5. HYDROCHLOROTHIAZIDE [Concomitant]
     Indication: HYPERTENSION
     Dates: start: 20050101
  6. FUROSEMIDE [Concomitant]
     Indication: HYPERTENSION
     Dates: start: 20080516
  7. TETRAZEPAM [Concomitant]
     Indication: BACK PAIN
     Dates: start: 20080429, end: 20080504
  8. EFALIZUMAB [Concomitant]
     Indication: PSORIASIS
     Dates: start: 20030527, end: 20031209

REACTIONS (1)
  - LYMPHOCYTE MORPHOLOGY ABNORMAL [None]
